FAERS Safety Report 8439523-7 (Version None)
Quarter: 2012Q2

REPORT INFORMATION
  Report Type: 
  Country: None (occurrence: None)
  Receive Date: 20120615
  Receipt Date: 20120611
  Transmission Date: 20120825
  Serious: Yes (Life-Threatening)
  Sender: FDA-Public Use
  Company Number: FR-PFIZER INC-2012139470

PATIENT
  Age: 55 Year
  Sex: Male

DRUGS (9)
  1. LASIX [Concomitant]
     Dosage: UNK
  2. FLUCONAZOLE [Suspect]
     Indication: RESPIRATORY MONILIASIS
     Dosage: 400 MG, DAILY
     Route: 042
     Dates: start: 20120503, end: 20120507
  3. ACTRAPID [Concomitant]
     Dosage: UNK
  4. MIDAZOLAM HCL [Concomitant]
     Dosage: UNK
  5. ZYVOX [Suspect]
     Indication: PNEUMONIA
     Dosage: 1200 MG, DAILY
     Route: 042
     Dates: start: 20120430, end: 20120508
  6. VANCOMYCIN [Concomitant]
     Indication: PNEUMONIA
     Dosage: 4 MG, DAILY
     Route: 042
     Dates: start: 20120424, end: 20120428
  7. CLOBAZAM [Concomitant]
     Dosage: UNK
  8. NEXIUM [Concomitant]
     Dosage: UNK
  9. CIPROFLOXACIN HYDROCHLORIDE [Concomitant]
     Indication: PNEUMONIA
     Dosage: 800 MG, DAILY
     Route: 042
     Dates: start: 20120428, end: 20120504

REACTIONS (1)
  - PANCYTOPENIA [None]
